FAERS Safety Report 9772585 (Version 1)
Quarter: 2013Q4

REPORT INFORMATION
  Report Type: Spontaneous
  Country: FR (occurrence: FR)
  Receive Date: 20131219
  Receipt Date: 20131219
  Transmission Date: 20140711
  Serious: Yes (Other)
  Sender: FDA-Public Use
  Company Number: FR-JNJFOC-20131209491

PATIENT
  Age: 41 Year
  Sex: Male

DRUGS (2)
  1. XARELTO [Suspect]
     Indication: EMBOLISM VENOUS
     Route: 048
     Dates: start: 2013
  2. XARELTO [Suspect]
     Indication: PULMONARY EMBOLISM
     Route: 048
     Dates: start: 2013

REACTIONS (3)
  - Renal colic [Unknown]
  - Abdominal pain [Unknown]
  - Faeces discoloured [Unknown]
